FAERS Safety Report 5454426-8 (Version None)
Quarter: 2007Q3

REPORT INFORMATION
  Report Type: 
  Country: None (occurrence: None)
  Receive Date: 20070917
  Receipt Date: 20061002
  Transmission Date: 20080115
  Serious: No
  Sender: FDA-Public Use
  Company Number: US-ASTRAZENECA-2006UW17048

PATIENT
  Age: 35 Year
  Sex: Female
  Weight: 60.9 kg

DRUGS (5)
  1. SEROQUEL [Suspect]
     Indication: BIPOLAR I DISORDER
     Route: 048
     Dates: start: 20060920
  2. SEROQUEL [Suspect]
     Indication: BIPOLAR DISORDER
     Route: 048
     Dates: start: 20060920
  3. KLONOPIN [Concomitant]
     Indication: ANXIETY
     Route: 048
     Dates: start: 20060508
  4. IMITREX [Concomitant]
     Indication: MIGRAINE
     Route: 048
     Dates: start: 20060427
  5. DEPAKOTE ER [Concomitant]
     Indication: BIPOLAR DISORDER
     Route: 048
     Dates: start: 20060329

REACTIONS (1)
  - FAECES DISCOLOURED [None]
